FAERS Safety Report 6691503-8 (Version None)
Quarter: 2010Q2

REPORT INFORMATION
  Report Type: 
  Country: None (occurrence: None)
  Receive Date: 20100414
  Receipt Date: 20090409
  Transmission Date: 20101027
  Serious: Yes (Other)
  Sender: FDA-Public Use
  Company Number: 09-140

PATIENT
  Age: 61 Year
  Sex: Female

DRUGS (8)
  1. ALEVE [Suspect]
     Indication: PAIN IN EXTREMITY
     Dosage: 220 MG, DAILY, ORAL
     Route: 048
     Dates: start: 20090310, end: 20090331
  2. AMITRIPTLINE HYDROCHLORIDE TAB [Concomitant]
  3. INSULIN [Concomitant]
  4. LYRICA [Concomitant]
  5. ALTACE [Concomitant]
  6. POTASSIIUM [Concomitant]
  7. ZOCOR [Concomitant]
  8. TYLENOL-500 [Concomitant]

REACTIONS (1)
  - BLOOD GLUCOSE INCREASED [None]
